FAERS Safety Report 5241815-X (Version None)
Quarter: 2007Q1

REPORT INFORMATION
  Report Type: 
  Country: None (occurrence: None)
  Receive Date: 20061208
  Receipt Date: 20050818
  Transmission Date: 20070707
  Serious: Yes (Other)
  Sender: FDA-Public Use
  Company Number: 2005UW12324

PATIENT
  Age: 61 Year
  Sex: Female
  Weight: 76.657 kg

DRUGS (7)
  1. CRESTOR [Suspect]
     Indication: BLOOD CHOLESTEROL INCREASED
     Dosage: 10 MG PO
     Route: 048
     Dates: start: 20050601, end: 20050801
  2. COZAAR [Concomitant]
  3. BUSPIRONE HCL [Concomitant]
  4. TRIAMTEREN [Concomitant]
  5. SULINDAC [Concomitant]
  6. OXYBUTYNIN CHLORIDE [Concomitant]
  7. ATENOLOL [Concomitant]

REACTIONS (3)
  - CONSTIPATION [None]
  - FLATULENCE [None]
  - WEIGHT INCREASED [None]
